FAERS Safety Report 9410275 (Version 1)
Quarter: 2013Q3

REPORT INFORMATION
  Report Type: Spontaneous
  Country: US (occurrence: US)
  Receive Date: 20130719
  Receipt Date: 20130719
  Transmission Date: 20140515
  Serious: Yes (Other)
  Sender: FDA-Public Use
  Company Number: US-JNJFOC-20130707777

PATIENT
  Sex: 0

DRUGS (2)
  1. DOXORUBICIN HYDROCHLORIDE [Suspect]
     Indication: NEOPLASM
     Dosage: CYCLE 1, HIGHER DOSE LEVELS
     Route: 042
  2. BIRINAPANT [Suspect]
     Indication: NEOPLASM
     Dosage: DOSES OF 2.8 TO 47 MG/M2
     Route: 065

REACTIONS (2)
  - VIIth nerve paralysis [Recovered/Resolved]
  - Toxicity to various agents [None]
